FAERS Safety Report 23931419 (Version 1)
Quarter: 2024Q2

REPORT INFORMATION
  Report Type: Spontaneous
  Country: US (occurrence: US)
  Receive Date: 20240603
  Receipt Date: 20240603
  Transmission Date: 20240716
  Serious: Yes (Hospitalization, Other)
  Sender: FDA-Public Use
  Company Number: US-BRISTOL-MYERS SQUIBB COMPANY-2024-087609

PATIENT
  Age: 80 Year
  Sex: Female
  Weight: 47.63 kg

DRUGS (1)
  1. POMALYST [Suspect]
     Active Substance: POMALIDOMIDE
     Indication: Plasma cell myeloma
     Dosage: 2MG CAPSULE DAILY FOR 21 DAYS OF A 28 DAY CYCLE
     Route: 048

REACTIONS (1)
  - Clostridium difficile colitis [Unknown]
